FAERS Safety Report 10585684 (Version 4)
Quarter: 2015Q3

REPORT INFORMATION
  Report Type: Spontaneous
  Country: US (occurrence: US)
  Receive Date: 20141114
  Receipt Date: 20150805
  Transmission Date: 20151125
  Serious: Yes (Hospitalization, Disabling, Other)
  Sender: FDA-Public Use
  Company Number: US-009507513-1411USA006156

PATIENT
  Sex: Female
  Weight: 151 kg

DRUGS (3)
  1. FOSAMAX PLUS D [Suspect]
     Active Substance: ALENDRONATE SODIUM\CHOLECALCIFEROL
     Indication: OSTEOPOROSIS
     Dosage: UNK UNK, UNKNOWN
     Route: 048
     Dates: start: 20051203, end: 20100629
  2. ALENDRONATE SODIUM. [Suspect]
     Active Substance: ALENDRONATE SODIUM
     Indication: OSTEOPOROSIS
     Dosage: 70 MG, QW
     Route: 048
     Dates: start: 20080817, end: 20130617
  3. FOSAMAX [Suspect]
     Active Substance: ALENDRONATE SODIUM
     Indication: OSTEOPOROSIS
     Dosage: 70 MG, QW
     Route: 048

REACTIONS (38)
  - Vitamin D deficiency [Unknown]
  - Hypertension [Unknown]
  - Malignant hypertension [Unknown]
  - Spondylolisthesis [Unknown]
  - Femur fracture [Unknown]
  - Dermal cyst [Unknown]
  - Oedema peripheral [Unknown]
  - Anaemia postoperative [Unknown]
  - Femur fracture [Unknown]
  - Glucose tolerance impaired [Unknown]
  - Lipoma [Unknown]
  - Gastrooesophageal reflux disease [Unknown]
  - Femur fracture [Unknown]
  - Tooth extraction [Unknown]
  - Osteoarthritis [Unknown]
  - Hyperlipidaemia [Unknown]
  - Meralgia paraesthetica [Unknown]
  - Anxiety [Unknown]
  - Hyperparathyroidism [Unknown]
  - Tooth disorder [Unknown]
  - Paraesthesia [Unknown]
  - Herpes simplex [Unknown]
  - Pain in extremity [Unknown]
  - Tooth disorder [Unknown]
  - Foot deformity [Unknown]
  - Obesity [Unknown]
  - Muscle spasms [Unknown]
  - Chronic kidney disease [Unknown]
  - Polyneuropathy [Unknown]
  - Tooth extraction [Unknown]
  - Lumbar spinal stenosis [Unknown]
  - Polyneuropathy [Not Recovered/Not Resolved]
  - Intervertebral disc disorder [Unknown]
  - Hypophosphataemia [Recovered/Resolved]
  - Osteopenia [Unknown]
  - Intramedullary rod insertion [Unknown]
  - Hypercalcaemia [Recovered/Resolved]
  - Fall [Unknown]

NARRATIVE: CASE EVENT DATE: 2011
